FAERS Safety Report 4335405-0 (Version None)
Quarter: 2004Q2

REPORT INFORMATION
  Report Type: 
  Country: None (occurrence: None)
  Receive Date: 20040408
  Receipt Date: 20040408
  Transmission Date: 20050107
  Serious: Yes (Hospitalization)
  Sender: FDA-Public Use
  Company Number: None

PATIENT
  Age: 42 Year
  Sex: Male
  Weight: 91.5 kg

DRUGS (2)
  1. VANCOMYCIN [Suspect]
     Indication: CELLULITIS
     Dosage: 1G,1G,Q24H INTRAVEN
     Route: 042
     Dates: start: 20040319, end: 20040319
  2. VANCOMYCIN [Suspect]
     Indication: THROMBOPHLEBITIS
     Dosage: 1G,1G,Q24H INTRAVEN
     Route: 042
     Dates: start: 20040319, end: 20040319

REACTIONS (2)
  - PRURITUS [None]
  - RASH [None]
